FAERS Safety Report 6021402-6 (Version None)
Quarter: 2008Q4

REPORT INFORMATION
  Report Type: 
  Country: None (occurrence: None)
  Receive Date: 20081229
  Receipt Date: 20081222
  Transmission Date: 20090506
  Serious: Yes (Hospitalization)
  Sender: FDA-Public Use
  Company Number: B0551498A

PATIENT
  Age: 59 Year
  Sex: Female

DRUGS (7)
  1. ARIXTRA [Suspect]
     Indication: THROMBOSIS PROPHYLAXIS
     Dosage: 2.5MG PER DAY
     Route: 058
     Dates: start: 20081209, end: 20081211
  2. THYRADIN S [Concomitant]
     Dosage: 75MCG PER DAY
     Route: 048
     Dates: start: 20081209
  3. DEPAKENE [Concomitant]
     Dosage: 200MG TWICE PER DAY
     Route: 048
     Dates: start: 20081209
  4. MEVALOTIN [Concomitant]
     Dosage: 20MG PER DAY
     Route: 048
     Dates: start: 20081209
  5. CORTRIL [Concomitant]
     Route: 048
     Dates: start: 20081209
  6. HALCION [Concomitant]
     Dosage: .125MG PER DAY
     Route: 048
     Dates: start: 20081209, end: 20081209
  7. MUCOSTA [Concomitant]
     Dosage: 100MG THREE TIMES PER DAY
     Route: 048
     Dates: start: 20081209

REACTIONS (2)
  - ALTERED STATE OF CONSCIOUSNESS [None]
  - BRAIN STEM HAEMORRHAGE [None]
